FAERS Safety Report 9258940 (Version 1)
Quarter: 2013Q2

REPORT INFORMATION
  Report Type: Spontaneous
  Country: JP (occurrence: JP)
  Receive Date: 20130426
  Receipt Date: 20130426
  Transmission Date: 20140414
  Serious: Yes (Other)
  Sender: FDA-Public Use
  Company Number: JP-GLAXOSMITHKLINE-B0886342A

PATIENT
  Age: 10 Year
  Sex: 0

DRUGS (3)
  1. LAMICTAL [Suspect]
     Indication: PRODUCT USED FOR UNKNOWN INDICATION
     Route: 048
     Dates: start: 201210, end: 201303
  2. LAMICTAL [Suspect]
     Indication: PRODUCT USED FOR UNKNOWN INDICATION
     Dosage: 25MG TWICE PER DAY
     Route: 048
     Dates: start: 201303, end: 2013
  3. LAMICTAL [Suspect]
     Indication: PRODUCT USED FOR UNKNOWN INDICATION
     Route: 048
     Dates: start: 2013, end: 20130415

REACTIONS (7)
  - Epilepsy [Unknown]
  - Hyperthermia [Unknown]
  - Infection [Unknown]
  - Dyskinesia [Unknown]
  - Ballismus [Unknown]
  - Choreoathetosis [Unknown]
  - Hypotonia [Not Recovered/Not Resolved]
